FAERS Safety Report 10173156 (Version 3)
Quarter: 2014Q2

REPORT INFORMATION
  Report Type: Spontaneous
  Country: US (occurrence: US)
  Receive Date: 20140515
  Receipt Date: 20140527
  Transmission Date: 20141212
  Serious: Yes (Other)
  Sender: FDA-Public Use
  Company Number: US-LUNDBECK-DKLU1099613

PATIENT
  Age: 4 Year
  Sex: Male

DRUGS (1)
  1. SABRIL (FOR ORAL SOLUTION) [Suspect]
     Indication: INFANTILE SPASMS
     Route: 048
     Dates: start: 20140402

REACTIONS (7)
  - Choking [Unknown]
  - Cough [Unknown]
  - Abnormal behaviour [Unknown]
  - Contusion [Recovered/Resolved]
  - Tremor [Unknown]
  - Irritability [Unknown]
  - Wrong technique in drug usage process [Unknown]
